FAERS Safety Report 7267680-7 (Version None)
Quarter: 2011Q1

REPORT INFORMATION
  Report Type: 
  Country: None (occurrence: None)
  Receive Date: 20110121
  Receipt Date: 20110113
  Transmission Date: 20110831
  Serious: Yes (Other)
  Sender: FDA-Public Use
  Company Number: 1000018172

PATIENT
  Age: 22 Year
  Sex: Female

DRUGS (2)
  1. PITOCIN [Suspect]
     Indication: LABOUR INDUCTION
  2. CERVIDIL [Suspect]
     Indication: LABOUR INDUCTION
     Dosage: 10 MG (10 MG, 1 IN 1 D), VAGINAL
     Route: 067
     Dates: start: 20110109, end: 20110111

REACTIONS (5)
  - CAESAREAN SECTION [None]
  - VOMITING [None]
  - DRUG EXPOSURE DURING PREGNANCY [None]
  - FATIGUE [None]
  - OEDEMA PERIPHERAL [None]
